FAERS Safety Report 22635054 (Version 1)
Quarter: 2023Q2

REPORT INFORMATION
  Report Type: Spontaneous
  Country: CN (occurrence: None)
  Receive Date: 20230623
  Receipt Date: 20230623
  Transmission Date: 20230722
  Serious: Yes (Other)
  Sender: FDA-Public Use
  Company Number: 2023A136509

PATIENT
  Age: 55 Year
  Sex: Female

DRUGS (1)
  1. TAGRISSO [Suspect]
     Active Substance: OSIMERTINIB
     Dosage: UNKNOWN
     Route: 048

REACTIONS (9)
  - Malignant neoplasm progression [Unknown]
  - Metastases to bone [Unknown]
  - Central nervous system lesion [Unknown]
  - Adrenomegaly [Unknown]
  - Product physical issue [Unknown]
  - Product colour issue [Unknown]
  - Suspected product tampering [Unknown]
  - Drug ineffective [Unknown]
  - Suspected counterfeit product [Unknown]
